FAERS Safety Report 6290560-0 (Version None)
Quarter: 2009Q3

REPORT INFORMATION
  Report Type: 
  Country: None (occurrence: None)
  Receive Date: 20090730
  Receipt Date: 20090717
  Transmission Date: 20100115
  Serious: Yes (Other)
  Sender: FDA-Public Use
  Company Number: US-ROCHE-644972

PATIENT
  Sex: Female
  Weight: 87.5 kg

DRUGS (6)
  1. OSELTAMIVIR [Suspect]
     Indication: INFLUENZA
     Route: 065
     Dates: start: 20080201, end: 20080201
  2. ADALIMUMAB [Suspect]
     Indication: PSORIASIS
     Dosage: OTHER INDICATION: PSORIATIC ARTHRITIS
     Route: 065
     Dates: start: 20070901, end: 20080201
  3. LEVOTHYROXINE SODIUM [Concomitant]
     Dosage: NO THYROID GLAND
  4. LISINOPRIL [Concomitant]
  5. VYTORIN [Concomitant]
     Dates: end: 20090101
  6. NEXIUM [Concomitant]
     Dates: end: 20090101

REACTIONS (7)
  - ANXIETY [None]
  - CELLULITIS [None]
  - HALLUCINATION [None]
  - INTERVERTEBRAL DISC PROTRUSION [None]
  - PAIN IN EXTREMITY [None]
  - PRURITUS [None]
  - PSORIASIS [None]
